FAERS Safety Report 18379377 (Version 1)
Quarter: 2020Q4

REPORT INFORMATION
  Report Type: Spontaneous
  Country: DK (occurrence: DK)
  Receive Date: 20201013
  Receipt Date: 20201013
  Transmission Date: 20210114
  Serious: Yes (Hospitalization)
  Sender: FDA-Public Use
  Company Number: DK-MYLANLABS-2020M1086709

PATIENT
  Age: 30 Year
  Sex: Female

DRUGS (18)
  1. INSULIN ASPART [Suspect]
     Active Substance: INSULIN ASPART
     Indication: STARVATION KETOACIDOSIS
     Dosage: ADMINISTERED AS REQUIRED
     Route: 058
  2. PROPYLTHIOURACIL. [Suspect]
     Active Substance: PROPYLTHIOURACIL
     Indication: HYPERTHYROIDISM
     Dosage: UNK
     Route: 065
  3. SODIUM CHLORIDE. [Suspect]
     Active Substance: SODIUM CHLORIDE
     Indication: STARVATION KETOACIDOSIS
     Dosage: DOSE: 500ML WITH 0.3% POTASSIUM-CHLORIDE
  4. INSULIN DETEMIR [Suspect]
     Active Substance: INSULIN DETEMIR
     Indication: STARVATION KETOACIDOSIS
     Dosage: ADMINISTERED BEFORE BEDTIME
     Route: 065
  5. INSULIN GLARGINE [Suspect]
     Active Substance: INSULIN GLARGINE
     Indication: STARVATION KETOACIDOSIS
     Dosage: DOSE: 6 IE/HOUR
     Route: 042
  6. INSULIN GLARGINE [Suspect]
     Active Substance: INSULIN GLARGINE
     Dosage: DOSE: 0-3IE/HOUR, BASED ON GLUCOSE LEVEL
     Route: 042
  7. INSULIN ASPART [Suspect]
     Active Substance: INSULIN ASPART
     Indication: STARVATION KETOACIDOSIS
     Dosage: DOSE: 20IE; ADMINISTERED AS DRIP
     Route: 065
  8. ONDANSETRON [Suspect]
     Active Substance: ONDANSETRON
     Indication: HYPEREMESIS GRAVIDARUM
     Dosage: UNK
     Route: 065
  9. MECLIZINE [Suspect]
     Active Substance: MECLIZINE HYDROCHLORIDE
     Indication: HYPEREMESIS GRAVIDARUM
     Dosage: UNK
     Route: 065
  10. POTASSIUM [Suspect]
     Active Substance: POTASSIUM
     Indication: STARVATION KETOACIDOSIS
     Dosage: 20 MILLIMOLE ADMINISTERED AS DRIP
     Route: 065
  11. PREDNISOLONE. [Suspect]
     Active Substance: PREDNISOLONE
     Dosage: GRADUALLY REDUCED AND DISCONTINUED EVENTUALLY
     Route: 048
  12. POTASSIUM CHLORIDE. [Suspect]
     Active Substance: POTASSIUM CHLORIDE
     Indication: STARVATION KETOACIDOSIS
     Dosage: DOSE: 500ML WITH 0.9% SODIUM-CHLORIDE, QH
  13. PREDNISOLONE. [Suspect]
     Active Substance: PREDNISOLONE
     Indication: HYPEREMESIS GRAVIDARUM
     Dosage: 50 MILLIGRAM, QD
     Route: 048
  14. METOCLOPRAMIDE. [Suspect]
     Active Substance: METOCLOPRAMIDE
     Indication: HYPEREMESIS GRAVIDARUM
     Dosage: UNK
     Route: 065
  15. GLUCOSE [Suspect]
     Active Substance: DEXTROSE
     Indication: STARVATION KETOACIDOSIS
     Dosage: INITIAL DOSE NOT STATED, QH
  16. INSULIN ASPART [Suspect]
     Active Substance: INSULIN ASPART
     Dosage: ADMINISTERED AS BASAL BOLUS AT MEALS
     Route: 065
  17. SODIUM CHLORIDE. [Suspect]
     Active Substance: SODIUM CHLORIDE
     Dosage: DOSE: 250-500MG/HOUR, QH
  18. GLUCOSE [Suspect]
     Active Substance: DEXTROSE
     Dosage: 60 MILLILITER, QH ADMINISTERED AS REQUIRED

REACTIONS (4)
  - Drug ineffective [Unknown]
  - Off label use [Recovered/Resolved]
  - Normal newborn [Recovered/Resolved]
  - Maternal exposure during pregnancy [Recovered/Resolved]
